FAERS Safety Report 5209455-6 (Version None)
Quarter: 2007Q1

REPORT INFORMATION
  Report Type: 
  Country: None (occurrence: None)
  Receive Date: 20070116
  Receipt Date: 20070105
  Transmission Date: 20070707
  Serious: Yes (Death)
  Sender: FDA-Public Use
  Company Number: PL-PFIZER INC-2007002077

PATIENT
  Age: 54 Year
  Sex: Male

DRUGS (4)
  1. VFEND [Suspect]
     Indication: BRONCHOPULMONARY ASPERGILLOSIS
     Dates: start: 20061222, end: 20061223
  2. ACYCLOVIR [Concomitant]
  3. CYCLOPHOSPHAMIDE [Concomitant]
     Dates: start: 20061121, end: 20061123
  4. CLADRIBINE [Concomitant]
     Dates: start: 20061121, end: 20061123

REACTIONS (1)
  - RHABDOMYOLYSIS [None]
